FAERS Safety Report 21741188 (Version 1)
Quarter: 2022Q4

REPORT INFORMATION
  Report Type: Spontaneous
  Country: US (occurrence: US)
  Receive Date: 20221216
  Receipt Date: 20221216
  Transmission Date: 20230113
  Serious: No
  Sender: FDA-Public Use
  Company Number: US-AVEO ONCOLOGY-2022-AVEO-US000421

PATIENT

DRUGS (12)
  1. FOTIVDA [Suspect]
     Active Substance: TIVOZANIB HYDROCHLORIDE
     Indication: Renal cell carcinoma
     Dosage: 1.34 MG, DAILY FOR 21 DAYS WITH 7 DAYS OFF (28-DAY CYCLE)
     Route: 048
     Dates: start: 20220819
  2. PANTOPRAZOLE [Concomitant]
     Active Substance: PANTOPRAZOLE
  3. MEMANTINE [Concomitant]
     Active Substance: MEMANTINE
  4. FENTANYL [Concomitant]
     Active Substance: FENTANYL
  5. ACETAMINOPHEN\HYDROCODONE [Concomitant]
     Active Substance: ACETAMINOPHEN\HYDROCODONE
  6. NIFEDIPINE [Concomitant]
     Active Substance: NIFEDIPINE
  7. LISINOPRIL [Concomitant]
     Active Substance: LISINOPRIL
  8. HYDROCORTISONE [Concomitant]
     Active Substance: HYDROCORTISONE
  9. ONDANSETRON [Concomitant]
     Active Substance: ONDANSETRON
  10. PROAIR HFA [Concomitant]
     Active Substance: ALBUTEROL SULFATE
  11. LEVOTHYROXINE [Concomitant]
     Active Substance: LEVOTHYROXINE
  12. FAMOTIDINE [Concomitant]
     Active Substance: FAMOTIDINE

REACTIONS (2)
  - Nausea [Unknown]
  - Taste disorder [Unknown]
